FAERS Safety Report 9468390 (Version 1)
Quarter: 2013Q3

REPORT INFORMATION
  Report Type: Spontaneous
  Country: FR (occurrence: FR)
  Receive Date: 20130821
  Receipt Date: 20130821
  Transmission Date: 20140515
  Serious: Yes (Other)
  Sender: FDA-Public Use
  Company Number: PHHY2013FR089968

PATIENT
  Sex: Female

DRUGS (2)
  1. METFORMIN [Suspect]
     Dosage: UNK UKN, UNK
     Route: 064
  2. INSULIN [Suspect]

REACTIONS (4)
  - Craniofacial dysostosis [Unknown]
  - Retrognathia [Unknown]
  - Pancreatic islets hyperplasia [Unknown]
  - Foetal exposure during pregnancy [Unknown]
